FAERS Safety Report 4333198-4 (Version None)
Quarter: 2004Q1

REPORT INFORMATION
  Report Type: 
  Country: None (occurrence: None)
  Receive Date: 20040330
  Receipt Date: 20040319
  Transmission Date: 20041129
  Serious: Yes (Hospitalization)
  Sender: FDA-Public Use
  Company Number: MK200403-0191-1

PATIENT
  Age: 78 Year
  Sex: Male

DRUGS (5)
  1. ANAFRANIL [Suspect]
     Dosage: 25 MG PO QD
     Route: 048
     Dates: start: 20040126, end: 20040126
  2. ACETAMINOPHEN [Concomitant]
  3. IMOVANE (ZOPICLONE) [Concomitant]
  4. LEVOTHYROXINE SODIUM [Concomitant]
  5. NASONEX [Concomitant]

REACTIONS (3)
  - ARRHYTHMIA [None]
  - BLOOD PRESSURE DECREASED [None]
  - HEART RATE ABNORMAL [None]
